FAERS Safety Report 9988799 (Version 7)
Quarter: 2015Q2

REPORT INFORMATION
  Report Type: Spontaneous
  Country: US (occurrence: None)
  Receive Date: 20131018
  Receipt Date: 20150506
  Transmission Date: 20150821
  Serious: Yes (Life-Threatening, Hospitalization, Other)
  Sender: FDA-Public Use
  Company Number: ADR-2013-00332

PATIENT
  Age: 46 Year
  Sex: Female

DRUGS (3)
  1. BACLOFEN. [Suspect]
     Active Substance: BACLOFEN
     Indication: MUSCLE SPASTICITY
     Dosage: SEE B5
  2. FENTANYL INTRATHECAL 500 MCG/ML [Suspect]
     Active Substance: FENTANYL
     Dosage: (DOSE 80.12 MCG/DAY) FENTANYL PATCH (TRANSDERMAL)
     Route: 062
  3. MORPHINE [Suspect]
     Active Substance: MORPHINE
     Dosage: 1 MG/DAY

REACTIONS (35)
  - Mobility decreased [None]
  - Renal pain [None]
  - Retching [None]
  - Dyskinesia [None]
  - Drug hypersensitivity [None]
  - No therapeutic response [None]
  - Dysuria [None]
  - Medical device complication [None]
  - Suicidal ideation [None]
  - Stress urinary incontinence [None]
  - Hypotonia [None]
  - Muscle rigidity [None]
  - Device kink [None]
  - Diplegia [None]
  - Muscle spasms [None]
  - Urinary retention [None]
  - Enuresis [None]
  - Somnolence [None]
  - Muscle spasticity [None]
  - Loss of control of legs [None]
  - Nausea [None]
  - Granuloma [None]
  - Overdose [None]
  - Feeling abnormal [None]
  - Inadequate analgesia [None]
  - Unresponsive to stimuli [None]
  - Headache [None]
  - Vomiting [None]
  - Bladder disorder [None]
  - Urinary tract infection [None]
  - Insomnia [None]
  - Respiratory arrest [None]
  - Drug intolerance [None]
  - Loss of consciousness [None]
  - Respiratory disorder [None]
